FAERS Safety Report 5275286-4 (Version None)
Quarter: 2007Q1

REPORT INFORMATION
  Report Type: 
  Country: None (occurrence: None)
  Receive Date: 20070326
  Receipt Date: 20070320
  Transmission Date: 20070707
  Serious: Yes (Hospitalization)
  Sender: FDA-Public Use
  Company Number: FR-AVENTIS-200710994FR

PATIENT
  Age: 58 Year
  Sex: Female

DRUGS (5)
  1. TAXOTERE [Suspect]
     Indication: BREAST CANCER
     Route: 042
  2. HERCEPTIN [Suspect]
     Indication: BREAST CANCER
     Route: 042
  3. CYCLOPHOSPHAMIDE [Concomitant]
     Indication: BREAST CANCER
     Route: 042
  4. FLUOROURACIL [Concomitant]
     Indication: BREAST CANCER
     Route: 042
  5. EPIRUBICIN [Concomitant]
     Indication: BREAST CANCER
     Route: 042

REACTIONS (1)
  - ARTHRITIS [None]
